FAERS Safety Report 23250537 (Version 1)
Quarter: 2023Q4

REPORT INFORMATION
  Report Type: Spontaneous
  Country: US (occurrence: None)
  Receive Date: 20231130
  Receipt Date: 20231130
  Transmission Date: 20240110
  Serious: Yes (Hospitalization)
  Sender: FDA-Public Use
  Company Number: None

PATIENT
  Sex: Female

DRUGS (9)
  1. DULOXETINE [Suspect]
     Active Substance: DULOXETINE
     Indication: Product used for unknown indication
     Dosage: 40MG QD PO?
     Route: 048
     Dates: start: 202305
  2. GABAPENTIN [Concomitant]
     Active Substance: GABAPENTIN
  3. KETOCONAZOLE CRE [Concomitant]
  4. DOVATO [Concomitant]
     Active Substance: DOLUTEGRAVIR SODIUM\LAMIVUDINE
  5. HYDROXYZINE PAMOATE [Concomitant]
     Active Substance: HYDROXYZINE PAMOATE
  6. AMOXICILLIN [Concomitant]
  7. PANTOPRAZOLE SODIUM [Concomitant]
     Active Substance: PANTOPRAZOLE SODIUM
  8. CYCLOBENZAPRINE [Concomitant]
  9. METHYLPREDNISOLONE [Concomitant]

REACTIONS (2)
  - Gastritis [None]
  - Intestinal obstruction [None]
